FAERS Safety Report 24252399 (Version 3)
Quarter: 2024Q4

REPORT INFORMATION
  Report Type: Report from Study
  Country: TW (occurrence: TW)
  Receive Date: 20240827
  Receipt Date: 20241004
  Transmission Date: 20250115
  Serious: Yes (Other)
  Sender: GILEAD
  Company Number: TW-GILEAD-2024-0685163

PATIENT
  Age: 50 Year
  Sex: Female

DRUGS (5)
  1. SACITUZUMAB GOVITECAN-HZIY [Suspect]
     Active Substance: SACITUZUMAB GOVITECAN-HZIY
     Indication: Triple negative breast cancer
     Dosage: 180 MG, 10 MG/KG, STAT FOR 3 HOURS
     Route: 042
     Dates: start: 20240517
  2. SACITUZUMAB GOVITECAN-HZIY [Suspect]
     Active Substance: SACITUZUMAB GOVITECAN-HZIY
     Indication: Breast cancer female
     Dosage: UNK UNK, QD, FOR 90 MIN
     Route: 042
     Dates: start: 20240826
  3. SACITUZUMAB GOVITECAN-HZIY [Suspect]
     Active Substance: SACITUZUMAB GOVITECAN-HZIY
     Dosage: 360 MG, QD, 180MG/VIAL FRO 3 HR
     Route: 042
     Dates: start: 20240826
  4. SACITUZUMAB GOVITECAN-HZIY [Suspect]
     Active Substance: SACITUZUMAB GOVITECAN-HZIY
     Dosage: 360 MG, QD ADJUSTMENT: 95.24%, ([250ML] NACL 0.9% 250ML/BAG (OTSUKA, SOFT BAG) NORMAL SALINE 1 DISSO
     Route: 041
     Dates: start: 20240909, end: 20240909
  5. SACITUZUMAB GOVITECAN-HZIY [Suspect]
     Active Substance: SACITUZUMAB GOVITECAN-HZIY
     Dosage: 180 MG, QD, [250ML] NACL 0.9% 250 ML/BAG (OTSUKA, SOFT BAG) NORMAL SALINE 1 DISSOLVED IN: 125.0 ML
     Route: 041
     Dates: start: 20240919, end: 20240919

REACTIONS (3)
  - Cholangitis [Unknown]
  - Cholangitis [Unknown]
  - Cholangitis [Unknown]

NARRATIVE: CASE EVENT DATE: 20240819
